FAERS Safety Report 22286249 (Version 1)
Quarter: 2023Q2

REPORT INFORMATION
  Report Type: Spontaneous
  Country: AU (occurrence: AU)
  Receive Date: 20230505
  Receipt Date: 20230505
  Transmission Date: 20230722
  Serious: Yes (Death, Other)
  Sender: FDA-Public Use
  Company Number: AU-ABBVIE-4753523

PATIENT
  Age: 72 Year
  Sex: Male

DRUGS (3)
  1. CARBIDOPA\LEVODOPA [Suspect]
     Active Substance: CARBIDOPA\LEVODOPA
     Indication: Parkinson^s disease
     Dosage: MORNING DOSE 6MLS, CONTINUOUS RATE 1.9MLS, EXTRA DOSE 0.5MLS
     Route: 050
     Dates: start: 201810
  2. CARBIDOPA\LEVODOPA [Suspect]
     Active Substance: CARBIDOPA\LEVODOPA
     Route: 050
     Dates: start: 201204
  3. RASAGILINE [Concomitant]
     Active Substance: RASAGILINE
     Indication: Product used for unknown indication
     Dates: start: 201210

REACTIONS (13)
  - Death [Fatal]
  - Speech disorder [Unknown]
  - Depressed mood [Unknown]
  - Dyskinesia [Unknown]
  - Choking [Unknown]
  - Cognitive disorder [Unknown]
  - Abdominal pain [Unknown]
  - On and off phenomenon [Unknown]
  - Weight decreased [Unknown]
  - Constipation [Unknown]
  - Palliative care [Unknown]
  - Dysphagia [Unknown]
  - Post procedural infection [Unknown]

NARRATIVE: CASE EVENT DATE: 20121001
